FAERS Safety Report 9356194 (Version 1)
Quarter: 2013Q2

REPORT INFORMATION
  Report Type: Spontaneous
  Country: US (occurrence: US)
  Receive Date: 20130619
  Receipt Date: 20130619
  Transmission Date: 20140414
  Serious: No
  Sender: FDA-Public Use
  Company Number: US-PFIZER INC-2013181591

PATIENT
  Sex: Female

DRUGS (2)
  1. ADVIL [Suspect]
     Indication: TOOTHACHE
     Dosage: UNK
  2. PEPTO-BISMOL [Suspect]
     Indication: DIARRHOEA
     Dosage: UNK

REACTIONS (2)
  - Diarrhoea [Unknown]
  - Faeces discoloured [Unknown]
